FAERS Safety Report 7951433-8 (Version None)
Quarter: 2011Q4

REPORT INFORMATION
  Report Type: 
  Country: None (occurrence: None)
  Receive Date: 20111201
  Receipt Date: 20111122
  Transmission Date: 20120403
  Serious: Yes (Hospitalization)
  Sender: FDA-Public Use
  Company Number: US-BAYER-2011-037545

PATIENT
  Age: 35 Year
  Sex: Female
  Weight: 77.098 kg

DRUGS (8)
  1. YAZ [Suspect]
     Indication: PREMENSTRUAL SYNDROME
     Dosage: UNK
     Dates: start: 20080101, end: 20080401
  2. YAZ [Suspect]
  3. ACIPHEX [Concomitant]
     Dosage: 20 MG, DAILY
  4. YASMIN [Suspect]
     Indication: PREMENSTRUAL SYNDROME
     Dosage: UNK
     Dates: start: 20080101, end: 20080401
  5. LORTAB [Concomitant]
     Dosage: 7.5, 1 OR 2, EVERY 4 TO 6 HOURS
     Route: 048
  6. LOVENOX [Concomitant]
     Dosage: 40 MG, QS
     Dates: start: 20091201
  7. YASMIN [Suspect]
  8. PROZAC [Concomitant]
     Dosage: 20 MG, DAILY
     Route: 048

REACTIONS (3)
  - GALLBLADDER DISORDER [None]
  - PAIN [None]
  - CHOLECYSTITIS CHRONIC [None]
